FAERS Safety Report 5423932-4 (Version None)
Quarter: 2007Q3

REPORT INFORMATION
  Report Type: 
  Country: None (occurrence: None)
  Receive Date: 20070823
  Receipt Date: 20070821
  Transmission Date: 20080115
  Serious: Yes (Life-Threatening, Hospitalization, Disabling)
  Sender: FDA-Public Use
  Company Number: US-SANOFI-SYNTHELABO-F01200701034

PATIENT
  Sex: Female

DRUGS (3)
  1. BEVACIZUMAB [Suspect]
     Dosage: 100 MG
     Route: 041
     Dates: start: 20070726, end: 20070726
  2. CAPECITABINE [Suspect]
     Route: 048
     Dates: start: 20070726
  3. OXALIPLATIN [Suspect]
     Indication: COLON CANCER
     Dosage: 155 MG
     Route: 041
     Dates: start: 20070726, end: 20070726

REACTIONS (2)
  - ABDOMINAL ABSCESS [None]
  - GASTROINTESTINAL PERFORATION [None]
